FAERS Safety Report 20814793 (Version 1)
Quarter: 2022Q2

REPORT INFORMATION
  Report Type: Spontaneous
  Country: US (occurrence: None)
  Receive Date: 20220511
  Receipt Date: 20220511
  Transmission Date: 20220721
  Serious: Yes (Hospitalization)
  Sender: FDA-Public Use
  Company Number: None

PATIENT
  Sex: Female

DRUGS (6)
  1. TREMFYA [Suspect]
     Active Substance: GUSELKUMAB
     Indication: Psoriasis
     Dosage: OTHER FREQUENCY : EVERY 8 WEEKS;?
     Route: 058
     Dates: start: 20170928
  2. TREMFYA [Suspect]
     Active Substance: GUSELKUMAB
     Dosage: OTHER QUANTITY : 1 SYRINGE;?OTHER FREQUENCY : EVERY 8 WEEKS;?
     Route: 058
  3. BACLOFEN [Concomitant]
     Active Substance: BACLOFEN
  4. DESIPRAMINE [Concomitant]
     Active Substance: DESIPRAMINE
  5. LOSARTAN POTASSIUM [Concomitant]
     Active Substance: LOSARTAN POTASSIUM
  6. OXYBUTYNIN [Concomitant]

REACTIONS (3)
  - Rash [None]
  - Therapy interrupted [None]
  - Pneumonia [None]
